FAERS Safety Report 26111747 (Version 1)
Quarter: 2025Q4

REPORT INFORMATION
  Report Type: Report from Study
  Country: CA (occurrence: CA)
  Receive Date: 20251202
  Receipt Date: 20251202
  Transmission Date: 20260117
  Serious: Yes (Other)
  Sender: TAKEDA
  Company Number: CA-TAKEDA-2025TUS108081

PATIENT
  Age: 71 Year
  Sex: Female

DRUGS (3)
  1. VEDOLIZUMAB [Suspect]
     Active Substance: VEDOLIZUMAB
     Indication: Crohn^s disease
     Dosage: 300 MILLIGRAM
  2. SKYRIZI [Concomitant]
     Active Substance: RISANKIZUMAB-RZAA
     Dosage: UNK
  3. CODEINE [Concomitant]
     Active Substance: CODEINE
     Dosage: UNK

REACTIONS (2)
  - Brain neoplasm [Unknown]
  - Malaise [Unknown]
